FAERS Safety Report 16990167 (Version 1)
Quarter: 2019Q4

REPORT INFORMATION
  Report Type: Spontaneous
  Country: US (occurrence: US)
  Receive Date: 20190920
  Receipt Date: 20190920
  Transmission Date: 20200122
  Serious: Yes (Hospitalization)
  Sender: FDA-Public Use
  Company Number: None

PATIENT
  Age: 86 Year
  Sex: Male

DRUGS (2)
  1. METOPROLOL. [Suspect]
     Active Substance: METOPROLOL
     Indication: HYPERTENSION
     Route: 048
     Dates: start: 20151215, end: 20190809
  2. GABAPENTIN. [Suspect]
     Active Substance: GABAPENTIN
     Indication: PAIN IN EXTREMITY
     Route: 048
     Dates: start: 20180514, end: 20190809

REACTIONS (9)
  - Therapy cessation [None]
  - Dizziness [None]
  - Orthostatic hypotension [None]
  - Memory impairment [None]
  - Neuropathy peripheral [None]
  - Fall [None]
  - Atrioventricular block first degree [None]
  - Hypoglycaemia [None]
  - Visual impairment [None]

NARRATIVE: CASE EVENT DATE: 20190808
